FAERS Safety Report 24219307 (Version 3)
Quarter: 2024Q3

REPORT INFORMATION
  Report Type: Report from Study
  Country: GR (occurrence: GR)
  Receive Date: 20240816
  Receipt Date: 20240822
  Transmission Date: 20241016
  Serious: Yes (Death, Hospitalization, Other)
  Sender: ABBVIE
  Company Number: GR-ABBVIE-5881086

PATIENT
  Age: 78 Year
  Sex: Female

DRUGS (2)
  1. CARBIDOPA\LEVODOPA [Suspect]
     Active Substance: CARBIDOPA\LEVODOPA
     Indication: Parkinson^s disease
     Dosage: MORNING DOSE: 13.0ML; CONTINUOUS RATE: 2.2ML/H; EXTRA DOSE: 1.0ML
     Route: 050
     Dates: start: 20230718
  2. CARBIDOPA\LEVODOPA [Suspect]
     Active Substance: CARBIDOPA\LEVODOPA

REACTIONS (9)
  - Death [Fatal]
  - Loss of personal independence in daily activities [Unknown]
  - Gaze palsy [Unknown]
  - Dysstasia [Unknown]
  - Anal haemorrhage [Recovered/Resolved]
  - Haematocrit decreased [Unknown]
  - Muscle contractions involuntary [Unknown]
  - Loss of consciousness [Unknown]
  - Muscular weakness [Unknown]

NARRATIVE: CASE EVENT DATE: 20240801
